FAERS Safety Report 13884944 (Version 1)
Quarter: 2017Q3

REPORT INFORMATION
  Report Type: Spontaneous
  Country: US (occurrence: US)
  Receive Date: 20170821
  Receipt Date: 20170821
  Transmission Date: 20171127
  Serious: No
  Sender: FDA-Public Use
  Company Number: US-ASTRAZENECA-2017SE85025

PATIENT
  Age: 57 Year
  Sex: Male
  Weight: 77.1 kg

DRUGS (3)
  1. IPRATROPIUM BROMIDE AND ALBUTEROL SULFATE [Concomitant]
     Active Substance: ALBUTEROL SULFATE\IPRATROPIUM BROMIDE
     Dosage: DAILY
  2. SYMBICORT [Suspect]
     Active Substance: BUDESONIDE\FORMOTEROL FUMARATE DIHYDRATE
     Indication: CHRONIC OBSTRUCTIVE PULMONARY DISEASE
     Dosage: 160/4.5 MICROGRAMS, TWO TIMES A DAY
     Route: 055
     Dates: start: 20170813
  3. LEVAQUIN [Concomitant]
     Active Substance: LEVOFLOXACIN
     Indication: LUNG INFECTION
     Route: 048

REACTIONS (4)
  - Thirst [Unknown]
  - Dry mouth [Unknown]
  - Intentional product misuse [Unknown]
  - Circumstance or information capable of leading to medication error [Unknown]

NARRATIVE: CASE EVENT DATE: 20170813
